FAERS Safety Report 13023039 (Version 1)
Quarter: 2016Q4

REPORT INFORMATION
  Report Type: Spontaneous
  Country: US (occurrence: US)
  Receive Date: 20161213
  Receipt Date: 20161213
  Transmission Date: 20170207
  Serious: No
  Sender: FDA-Public Use
  Company Number: US-TEVA-629280USA

PATIENT
  Sex: Male

DRUGS (3)
  1. METHLPREDMISSON [Suspect]
     Active Substance: METHYLPREDNISOLONE
     Route: 065
  2. LEVOFLOXACIN. [Suspect]
     Active Substance: LEVOFLOXACIN
     Route: 065
  3. AZITHROMYCIN ANHYDROUS. [Suspect]
     Active Substance: AZITHROMYCIN ANHYDROUS
     Route: 065

REACTIONS (1)
  - Therapeutic response unexpected [Unknown]
